FAERS Safety Report 4702208-4 (Version None)
Quarter: 2005Q2

REPORT INFORMATION
  Report Type: 
  Country: None (occurrence: None)
  Receive Date: 20050628
  Receipt Date: 20050628
  Transmission Date: 20051028
  Serious: Yes (Hospitalization, Other)
  Sender: FDA-Public Use
  Company Number: None

PATIENT
  Age: 42 Year
  Sex: Female
  Weight: 72.5755 kg

DRUGS (4)
  1. LAMICTAL [Suspect]
     Indication: BIPOLAR DISORDER
     Dosage: 25 MG   QD   ORAL
     Route: 048
     Dates: start: 20050523, end: 20050605
  2. PREDNISONE [Concomitant]
  3. ATARAX [Concomitant]
  4. BENADRYL [Concomitant]

REACTIONS (15)
  - ABDOMINAL PAIN UPPER [None]
  - ASTHENIA [None]
  - AUTOIMMUNE DISORDER [None]
  - BACK PAIN [None]
  - ECONOMIC PROBLEM [None]
  - EYE PAIN [None]
  - HEADACHE [None]
  - IMMUNOSUPPRESSION [None]
  - LYMPHADENOPATHY [None]
  - NECK PAIN [None]
  - ORAL CANDIDIASIS [None]
  - PAIN [None]
  - PYREXIA [None]
  - STEVENS-JOHNSON SYNDROME [None]
  - VISUAL DISTURBANCE [None]
